FAERS Safety Report 17880747 (Version 1)
Quarter: 2020Q2

REPORT INFORMATION
  Report Type: Report from Study
  Country: CA (occurrence: CA)
  Receive Date: 20200610
  Receipt Date: 20200610
  Transmission Date: 20200714
  Serious: Yes (Other)
  Sender: FDA-Public Use
  Company Number: CA-JNJFOC-20190626301

PATIENT
  Age: 11 Year
  Sex: Male
  Weight: 34.1 kg

DRUGS (3)
  1. REMICADE [Suspect]
     Active Substance: INFLIXIMAB
     Indication: COLITIS ULCERATIVE
     Dosage: ON 29-MAY-2020, THE PATIENT RECEIVED 32TH INFLIXIMAB INFUSION FOR DOSE OF 300 MG
     Route: 042
     Dates: start: 20171212
  2. ASACOL [Concomitant]
     Active Substance: MESALAMINE
     Dates: start: 201906
  3. ASACOL [Concomitant]
     Active Substance: MESALAMINE
     Indication: PRODUCT USED FOR UNKNOWN INDICATION
     Route: 065
     Dates: end: 201905

REACTIONS (5)
  - Frequent bowel movements [Recovered/Resolved]
  - Haematochezia [Recovered/Resolved]
  - Oropharyngeal pain [Unknown]
  - General physical health deterioration [Unknown]
  - Abdominal pain [Recovering/Resolving]

NARRATIVE: CASE EVENT DATE: 20190619
